FAERS Safety Report 4296467-2 (Version None)
Quarter: 2004Q1

REPORT INFORMATION
  Report Type: 
  Country: None (occurrence: None)
  Receive Date: 20040217
  Receipt Date: 20040210
  Transmission Date: 20041129
  Serious: Yes (Other)
  Sender: FDA-Public Use
  Company Number: JP-BRISTOL-MYERS SQUIBB COMPANY-12500450

PATIENT
  Age: 36 Year
  Sex: Male

DRUGS (7)
  1. STOCRIN [Suspect]
     Indication: HIV INFECTION
     Route: 048
  2. VIDEX [Suspect]
     Indication: HIV INFECTION
     Route: 048
  3. ZERIT [Suspect]
     Indication: HIV INFECTION
     Route: 048
  4. LAMIVUDINE [Suspect]
     Indication: HIV INFECTION
     Route: 048
  5. ZIDOVUDINE [Suspect]
     Indication: HIV INFECTION
     Route: 048
  6. VIRAMUNE [Suspect]
     Indication: HIV INFECTION
     Route: 048
  7. VIRACEPT [Suspect]
     Indication: HIV INFECTION
     Route: 048

REACTIONS (1)
  - IMMUNE RECONSTITUTION SYNDROME [None]
